FAERS Safety Report 8312620-2 (Version None)
Quarter: 2012Q2

REPORT INFORMATION
  Report Type: 
  Country: None (occurrence: None)
  Receive Date: 20120424
  Receipt Date: 20120413
  Transmission Date: 20120825
  Serious: Yes (Disabling, Other)
  Sender: FDA-Public Use
  Company Number: ACO_30067_2012

PATIENT
  Age: 56 Year
  Sex: Female
  Weight: 81.6 kg

DRUGS (11)
  1. ASCORBIC ACID [Concomitant]
  2. AMPYRA [Suspect]
     Indication: GAIT DISTURBANCE
     Dosage: ORAL
     Route: 048
     Dates: end: 20120411
  3. MIRAPEX [Concomitant]
  4. PROVIGIL [Concomitant]
  5. TOVIAZ [Concomitant]
  6. FISH OIL (FISH OIL) [Concomitant]
  7. VITAMIN D [Concomitant]
  8. FOLIC ACID [Concomitant]
  9. BACLOFEN [Concomitant]
  10. CYMBALTA [Concomitant]
  11. CALCIUM CARBONATE [Concomitant]

REACTIONS (6)
  - ACTIVITIES OF DAILY LIVING IMPAIRED [None]
  - MOBILITY DECREASED [None]
  - DYSSTASIA [None]
  - MUSCULOSKELETAL STIFFNESS [None]
  - ASTHENIA [None]
  - MUSCLE SPASTICITY [None]
